FAERS Safety Report 15844912 (Version 1)
Quarter: 2019Q1

REPORT INFORMATION
  Report Type: Report from Study
  Country: None (occurrence: FR)
  Receive Date: 20190118
  Receipt Date: 20190118
  Transmission Date: 20190417
  Serious: Yes (Hospitalization, Disabling)
  Sender: FDA-Public Use
  Company Number: FR-ABBVIE-19S-056-2627915-00

PATIENT
  Sex: Female

DRUGS (1)
  1. DUODOPA [Suspect]
     Active Substance: CARBIDOPA\LEVODOPA
     Indication: PARKINSON^S DISEASE
     Dosage: MD : 14 ML ED : 5 ML  FLOW RATE DURING THE DAY: 12 ML/H DAY RHYTHM : 7:30 AM TO 7:30 PM
     Route: 050
     Dates: start: 201808

REACTIONS (9)
  - Incorrect route of product administration [Unknown]
  - Mobility decreased [Not Recovered/Not Resolved]
  - Infection [Unknown]
  - Freezing phenomenon [Unknown]
  - Speech disorder [Not Recovered/Not Resolved]
  - Stoma site infection [Not Recovered/Not Resolved]
  - General physical health deterioration [Not Recovered/Not Resolved]
  - Depression [Not Recovered/Not Resolved]
  - Tremor [Unknown]
